FAERS Safety Report 5048739-1 (Version None)
Quarter: 2006Q3

REPORT INFORMATION
  Report Type: 
  Country: None (occurrence: None)
  Receive Date: 20060706
  Receipt Date: 20060620
  Transmission Date: 20061208
  Serious: Yes (Hospitalization)
  Sender: FDA-Public Use
  Company Number: E2020-00170-SPO-FR

PATIENT
  Age: 84 Year
  Sex: Male

DRUGS (11)
  1. ARICEPT [Suspect]
     Indication: DEMENTIA ALZHEIMER'S TYPE
     Dosage: SEE IMAGE
     Route: 048
     Dates: start: 20040901, end: 20050318
  2. ARICEPT [Suspect]
     Indication: DEMENTIA ALZHEIMER'S TYPE
     Dosage: SEE IMAGE
     Route: 048
     Dates: start: 20050326
  3. METFORMINE (METFORMIN) [Concomitant]
  4. RAMIPRIL (TRIATEC) (RAMIPRIL) [Concomitant]
  5. FUROSEMIDE [Concomitant]
  6. DL-LYSINE ACETHYLSALICYLATE (ASPEGIC) (ACETYLSALICYLATE LYSINE) [Concomitant]
  7. FENOFIBRATE [Concomitant]
  8. TRINITRINE (NITRIDERM) (GLYCERYL TRINITRATE) [Concomitant]
  9. CARDENSIEL (BISOPROLOL) (BISOPROLOL) [Concomitant]
  10. MOPROL (OMEPRAZOLE) (OMEPRAZOLE) [Concomitant]
  11. KARDEGIC (DL-LYSINE ACETHYLSALICYLATE) (ACETYLSALICYLATE LYSINE) [Concomitant]

REACTIONS (4)
  - ATRIAL FIBRILLATION [None]
  - ATRIOVENTRICULAR BLOCK [None]
  - BRADYARRHYTHMIA [None]
  - VOMITING [None]
